FAERS Safety Report 17207539 (Version 1)
Quarter: 2019Q4

REPORT INFORMATION
  Report Type: Spontaneous
  Country: CA (occurrence: CA)
  Receive Date: 20191227
  Receipt Date: 20191227
  Transmission Date: 20200122
  Serious: Yes (Other)
  Sender: FDA-Public Use
  Company Number: CA-PFIZER INC-2019554497

PATIENT
  Sex: Female

DRUGS (14)
  1. TYLENOL [Concomitant]
     Active Substance: ACETAMINOPHEN
     Dosage: 1000 MG, 3X/DAY
  2. VITAMIN B12 [Concomitant]
     Active Substance: CYANOCOBALAMIN
     Dosage: 1000 UG/ML, EVERY 3 WEEKS
  3. CALCIUM ACETATE. [Concomitant]
     Active Substance: CALCIUM ACETATE
     Dosage: 500 MG, DAILY
     Route: 048
  4. RABEPRAZOLE SODIUM. [Concomitant]
     Active Substance: RABEPRAZOLE SODIUM
     Dosage: 20 MG, 1X/DAY
     Route: 048
  5. OMEGA 3,6,9 [Concomitant]
     Dosage: 1200 MG, (400 MG-400 MG-400 MG) (DAILY)
     Route: 048
  6. AMITRIPTYLINE HCL [Concomitant]
     Active Substance: AMITRIPTYLINE
     Dosage: 20 MG,HS (2 TABLETS EVERY DAY AT BEDTIME)
     Route: 048
  7. TYLENOL WITH CODEINE [Concomitant]
     Active Substance: ACETAMINOPHEN\CODEINE PHOSPHATE
     Dosage: UNK
  8. ERGOCALCIFEROL. [Concomitant]
     Active Substance: ERGOCALCIFEROL
     Dosage: 2000 IU, UNK
     Route: 048
  9. METHOTREXATE SODIUM. [Suspect]
     Active Substance: METHOTREXATE SODIUM
     Dosage: UNK
     Dates: start: 201401, end: 201403
  10. ROSUVASTATIN SANDOZ [Concomitant]
     Active Substance: ROSUVASTATIN CALCIUM
     Dosage: 10 MG, DAILY
  11. LEFLUNOMIDE. [Concomitant]
     Active Substance: LEFLUNOMIDE
     Dosage: 1 DF, 1X/DAY
     Route: 048
  12. SERTRALINE HCL [Concomitant]
     Active Substance: SERTRALINE HYDROCHLORIDE
     Dosage: 100 MG, DAILY
     Route: 048
  13. HYDROCHLOROTHIAZIDE. [Concomitant]
     Active Substance: HYDROCHLOROTHIAZIDE
     Dosage: 25 MG, DAILY
     Route: 048
  14. CANNABIDIOL [Concomitant]
     Active Substance: CANNABIDIOL
     Dosage: UNK
     Route: 048

REACTIONS (6)
  - Alopecia [Unknown]
  - Back pain [Unknown]
  - Bronchiectasis [Unknown]
  - Arthralgia [Unknown]
  - Malaise [Unknown]
  - Cough [Unknown]
